FAERS Safety Report 7410119-9 (Version None)
Quarter: 2011Q2

REPORT INFORMATION
  Report Type: 
  Country: None (occurrence: None)
  Receive Date: 20110412
  Receipt Date: 20110329
  Transmission Date: 20111010
  Serious: Yes (Hospitalization)
  Sender: FDA-Public Use
  Company Number: US-JNJFOC-20110404464

PATIENT
  Sex: Female
  Weight: 124.29 kg

DRUGS (15)
  1. STELARA [Suspect]
     Indication: PSORIASIS
     Route: 058
  2. TOPAMAX [Concomitant]
     Indication: ANXIETY
  3. ABILIFY [Concomitant]
     Indication: POST CONCUSSION SYNDROME
     Route: 048
  4. TOPAMAX [Concomitant]
     Indication: DEPRESSION
  5. LEVOXYL [Concomitant]
     Indication: THYROID DISORDER
     Route: 048
  6. XANAX [Concomitant]
     Indication: ANXIETY
     Route: 048
  7. CYMBALTA [Concomitant]
     Indication: ANXIETY
     Route: 048
  8. CYMBALTA [Concomitant]
     Indication: POST CONCUSSION SYNDROME
     Route: 048
  9. REMICADE [Suspect]
     Indication: PSORIASIS
     Route: 042
  10. DURAGESIC [Suspect]
     Indication: POST-TRAUMATIC PAIN
     Route: 062
  11. ABILIFY [Concomitant]
     Indication: ANXIETY
     Route: 048
  12. TOPAMAX [Concomitant]
     Indication: POST CONCUSSION SYNDROME
  13. OXYCODONE [Concomitant]
     Indication: PAIN
     Route: 048
  14. CYMBALTA [Concomitant]
     Indication: DEPRESSION
     Route: 048
  15. ABILIFY [Concomitant]
     Indication: DEPRESSION
     Route: 048

REACTIONS (1)
  - PANCREATITIS [None]
